FAERS Safety Report 5816616-1 (Version None)
Quarter: 2008Q3

REPORT INFORMATION
  Report Type: 
  Country: None (occurrence: None)
  Receive Date: 20080721
  Receipt Date: 20080711
  Transmission Date: 20090109
  Serious: Yes (Hospitalization)
  Sender: FDA-Public Use
  Company Number: US-SANOFI-SYNTHELABO-A03200802826

PATIENT
  Sex: Male
  Weight: 70.29 kg

DRUGS (4)
  1. CHOLESTEROL MEDICATION [Concomitant]
     Indication: BLOOD CHOLESTEROL INCREASED
     Dosage: UNK
     Route: 065
  2. ASPIRIN [Concomitant]
     Indication: DRUG USE FOR UNKNOWN INDICATION
     Dosage: UNK
     Route: 065
  3. PLAVIX [Suspect]
     Indication: CORONARY ARTERIAL STENT INSERTION
     Dosage: UNK
     Route: 048
     Dates: start: 20070101, end: 20080101
  4. PLAVIX [Suspect]
     Indication: INTRA-AORTIC BALLOON PLACEMENT
     Dosage: UNK
     Route: 048
     Dates: start: 20070101, end: 20080101

REACTIONS (8)
  - AMNESIA [None]
  - ANAEMIA [None]
  - CEREBRAL ISCHAEMIA [None]
  - DEPRESSION [None]
  - HEADACHE [None]
  - ILL-DEFINED DISORDER [None]
  - MENTAL DISORDER [None]
  - OBSESSIVE-COMPULSIVE DISORDER [None]
